FAERS Safety Report 12938869 (Version 1)
Quarter: 2016Q4

REPORT INFORMATION
  Report Type: Spontaneous
  Country: US (occurrence: US)
  Receive Date: 20161114
  Receipt Date: 20161114
  Transmission Date: 20170207
  Serious: Yes (Other)
  Sender: FDA-Public Use
  Company Number: None

PATIENT
  Sex: Female

DRUGS (3)
  1. STEROID SHOT [Concomitant]
     Active Substance: UNSPECIFIED INGREDIENT
  2. RASUVO [Suspect]
     Active Substance: METHOTREXATE SODIUM
     Indication: POLYARTHRITIS
     Dosage: 20MG(0.4ML) ONCE WEEKLY SUBCUTANEOUSLY
     Route: 058
     Dates: start: 20150429, end: 20161107
  3. RASUVO [Suspect]
     Active Substance: METHOTREXATE SODIUM
     Indication: RHEUMATOID ARTHRITIS
     Dosage: 20MG(0.4ML) ONCE WEEKLY SUBCUTANEOUSLY
     Route: 058
     Dates: start: 20150429, end: 20161107

REACTIONS (4)
  - Headache [None]
  - Incorrect product storage [None]
  - Nausea [None]
  - Paraesthesia [None]
